FAERS Safety Report 16201485 (Version 2)
Quarter: 2019Q3

REPORT INFORMATION
  Report Type: Spontaneous
  Country: US (occurrence: US)
  Receive Date: 20190416
  Receipt Date: 20190906
  Transmission Date: 20191004
  Serious: Yes (Other)
  Sender: FDA-Public Use
  Company Number: US-ASTRAZENECA-2019SE54442

PATIENT
  Age: 25719 Day
  Sex: Female
  Weight: 75.8 kg

DRUGS (39)
  1. CETRIZINE [Concomitant]
     Active Substance: CETIRIZINE HYDROCHLORIDE
  2. CELEBREX [Concomitant]
     Active Substance: CELECOXIB
  3. NYSTATIN. [Concomitant]
     Active Substance: NYSTATIN
  4. PROPRANOLOL [Concomitant]
     Active Substance: PROPRANOLOL HYDROCHLORIDE
  5. LORAZEPAM. [Concomitant]
     Active Substance: LORAZEPAM
  6. EVOXAC [Concomitant]
     Active Substance: CEVIMELINE HYDROCHLORIDE
  7. NEXIUM [Suspect]
     Active Substance: ESOMEPRAZOLE MAGNESIUM
     Indication: GASTROOESOPHAGEAL REFLUX DISEASE
     Route: 048
     Dates: start: 20150125
  8. AMOXICILLIN. [Concomitant]
     Active Substance: AMOXICILLIN
  9. METFORMIN [Concomitant]
     Active Substance: METFORMIN HYDROCHLORIDE
  10. CYMBALTA [Concomitant]
     Active Substance: DULOXETINE HYDROCHLORIDE
  11. TAMOXIFEN [Concomitant]
     Active Substance: TAMOXIFEN
  12. CYTOMEL [Concomitant]
     Active Substance: LIOTHYRONINE SODIUM
  13. NEXIUM [Suspect]
     Active Substance: ESOMEPRAZOLE MAGNESIUM
     Indication: GASTROOESOPHAGEAL REFLUX DISEASE
     Dosage: 20 MG
     Route: 048
     Dates: start: 200311, end: 201501
  14. PREDNISONE. [Concomitant]
     Active Substance: PREDNISONE
  15. TOPIRAMATE. [Concomitant]
     Active Substance: TOPIRAMATE
  16. ABILIFY [Concomitant]
     Active Substance: ARIPIPRAZOLE
  17. SONATA [Concomitant]
     Active Substance: ZALEPLON
  18. TOPAMAX [Concomitant]
     Active Substance: TOPIRAMATE
  19. NEXIUM [Suspect]
     Active Substance: ESOMEPRAZOLE MAGNESIUM
     Indication: GASTROOESOPHAGEAL REFLUX DISEASE
     Route: 048
     Dates: start: 20041209
  20. METHYLPHENIDATE. [Concomitant]
     Active Substance: METHYLPHENIDATE
  21. ARIPIPRAZOLE. [Concomitant]
     Active Substance: ARIPIPRAZOLE
  22. BACLOFEN. [Concomitant]
     Active Substance: BACLOFEN
  23. BUSPIRONE [Concomitant]
     Active Substance: BUSPIRONE HYDROCHLORIDE
  24. NEXIUM [Suspect]
     Active Substance: ESOMEPRAZOLE MAGNESIUM
     Indication: GASTROOESOPHAGEAL REFLUX DISEASE
     Dosage: GENERIC 20 MG
     Route: 065
     Dates: start: 201504
  25. SYMBICORT [Concomitant]
     Active Substance: BUDESONIDE\FORMOTEROL FUMARATE DIHYDRATE
  26. TRAZODONE [Concomitant]
     Active Substance: TRAZODONE HYDROCHLORIDE
  27. RITALIN [Concomitant]
     Active Substance: METHYLPHENIDATE HYDROCHLORIDE
  28. FOCALIN [Concomitant]
     Active Substance: DEXMETHYLPHENIDATE HYDROCHLORIDE
  29. LEXAPRO [Concomitant]
     Active Substance: ESCITALOPRAM OXALATE
  30. NEXIUM [Suspect]
     Active Substance: ESOMEPRAZOLE MAGNESIUM
     Indication: GASTROOESOPHAGEAL REFLUX DISEASE
     Route: 048
     Dates: start: 20031118, end: 20150130
  31. PULMICORT TURBUHALER [Concomitant]
     Active Substance: BUDESONIDE
  32. SERTRALINE [Concomitant]
     Active Substance: SERTRALINE HYDROCHLORIDE
  33. QUETIAPINE. [Concomitant]
     Active Substance: QUETIAPINE
  34. CEFUROXIME. [Concomitant]
     Active Substance: CEFUROXIME
  35. CELECOXIB. [Concomitant]
     Active Substance: CELECOXIB
  36. VYVANSE [Concomitant]
     Active Substance: LISDEXAMFETAMINE DIMESYLATE
  37. ATORVASTATIN [Concomitant]
     Active Substance: ATORVASTATIN
  38. LATUDA [Concomitant]
     Active Substance: LURASIDONE HYDROCHLORIDE
  39. ROZEREM [Concomitant]
     Active Substance: RAMELTEON

REACTIONS (1)
  - Chronic kidney disease [Not Recovered/Not Resolved]

NARRATIVE: CASE EVENT DATE: 20141024
